FAERS Safety Report 4890543-9 (Version None)
Quarter: 2006Q1

REPORT INFORMATION
  Report Type: 
  Country: None (occurrence: None)
  Receive Date: 20060123
  Receipt Date: 20060104
  Transmission Date: 20060701
  Serious: Yes (Other)
  Sender: FDA-Public Use
  Company Number: US200511000062

PATIENT
  Age: 62 Year
  Sex: Female

DRUGS (1)
  1. INSULIIN(INSULIN) [Suspect]

REACTIONS (3)
  - ASTHMA [None]
  - COUGH [None]
  - LATEX ALLERGY [None]
